FAERS Safety Report 21694934 (Version 1)
Quarter: 2022Q4

REPORT INFORMATION
  Report Type: Spontaneous
  Country: US (occurrence: US)
  Receive Date: 20221207
  Receipt Date: 20221207
  Transmission Date: 20230113
  Serious: Yes (Other)
  Sender: FDA-Public Use
  Company Number: US-FreseniusKabi-FK202217447

PATIENT
  Age: 2 Day
  Sex: Male

DRUGS (1)
  1. ONDANSETRON [Suspect]
     Active Substance: ONDANSETRON
     Indication: Product used for unknown indication
     Dosage: INJECTED IT INTRAMUSCULARLY (IM) INTO THE PUBIC SYMPHYSIS AREA?INJECTED ONDANSETRON 2MG AND GAVE A D
     Route: 030

REACTIONS (4)
  - Penile oedema [Unknown]
  - Bradycardia [Recovered/Resolved]
  - Electrocardiogram QT prolonged [Recovered/Resolved]
  - Wrong product administered [Unknown]
